FAERS Safety Report 21083230 (Version 1)
Quarter: 2022Q3

REPORT INFORMATION
  Report Type: Spontaneous
  Country: US (occurrence: US)
  Receive Date: 20220714
  Receipt Date: 20220714
  Transmission Date: 20221026
  Serious: No
  Sender: FDA-Public Use
  Company Number: US-SUNOVION-2022SUN002089

PATIENT
  Sex: Female

DRUGS (1)
  1. LUNESTA [Suspect]
     Active Substance: ESZOPICLONE
     Indication: Insomnia
     Dosage: UNK UNK, AS NECESSARY
     Route: 048

REACTIONS (4)
  - Tongue discomfort [Unknown]
  - Glossodynia [Unknown]
  - Aptyalism [Unknown]
  - Anxiety [Unknown]
